FAERS Safety Report 10041762 (Version 1)
Quarter: 2014Q1

REPORT INFORMATION
  Report Type: Spontaneous
  Country: US (occurrence: US)
  Receive Date: 20140327
  Receipt Date: 20140327
  Transmission Date: 20141002
  Serious: Yes (Other)
  Sender: FDA-Public Use
  Company Number: US-ACTAVIS-2014-05491

PATIENT
  Age: 74 Year
  Sex: Male

DRUGS (1)
  1. METOCLOPRAMIDE (WATSON LABORATORIES) [Suspect]
     Indication: GASTRIC ULCER
     Dosage: UNK
     Route: 065

REACTIONS (3)
  - Dystonic tremor [Recovered/Resolved]
  - Blepharospasm [Recovered/Resolved]
  - Dyskinesia [Recovered/Resolved]
